FAERS Safety Report 16742722 (Version 1)
Quarter: 2019Q3

REPORT INFORMATION
  Report Type: Spontaneous
  Country: CN (occurrence: CN)
  Receive Date: 20190826
  Receipt Date: 20190826
  Transmission Date: 20191005
  Serious: Yes (Other)
  Sender: FDA-Public Use
  Company Number: CN-BAXTER-2019BAX016500

PATIENT
  Age: 48 Year
  Sex: Female
  Weight: 51 kg

DRUGS (12)
  1. ENDOXAN [Suspect]
     Active Substance: CYCLOPHOSPHAMIDE
     Indication: BREAST CANCER FEMALE
     Dosage: ENDOXAN (0.75 G) DILUTED WITH SODIUM CHLORIDE (250 ML), FEC REGIMEN
     Route: 041
     Dates: start: 20190113, end: 20190114
  2. FLUOROURACIL. [Suspect]
     Active Substance: FLUOROURACIL
     Indication: BREAST CANCER FEMALE
     Dosage: FLUOROURACIL (0.75 G) DILUTED WITH SODIUM CHLORIDE (500 ML), FEC REGIMEN
     Route: 041
     Dates: start: 20190113, end: 20190114
  3. PHARMORUBICIN RD [Suspect]
     Active Substance: EPIRUBICIN
     Indication: BREAST CANCER FEMALE
     Dosage: PHARMORUBICIN RD (150 MG) DILUTED WITH SODIUM CHLORIDE (250 ML), FEC REGIMEN
     Route: 041
     Dates: start: 20190113, end: 20190114
  4. 0.9% SODIUM CHLORIDE INJECTION [Suspect]
     Active Substance: SODIUM CHLORIDE
     Indication: MEDICATION DILUTION
     Dosage: SOLVENT FOR 5-FU, FEC REGIMEN
     Route: 041
     Dates: start: 20190113, end: 20190114
  5. 0.9% SODIUM CHLORIDE INJECTION [Suspect]
     Active Substance: SODIUM CHLORIDE
     Dosage: DOSE RE-INTRODUCED WITH CYCLOPHOSPHAMIDE, FEC REGIMEN
     Route: 041
  6. 0.9% SODIUM CHLORIDE INJECTION [Suspect]
     Active Substance: SODIUM CHLORIDE
     Dosage: DOSE RE-INTRODUCED WITH EPIRUBICIN, FEC REGIMEN
     Route: 041
  7. 0.9% SODIUM CHLORIDE INJECTION [Suspect]
     Active Substance: SODIUM CHLORIDE
     Dosage: SOLVENT FOR CYCLOPHOSPHAMIDE, FEC REGIMEN
     Route: 041
     Dates: start: 20190113, end: 20190114
  8. PHARMORUBICIN RD [Suspect]
     Active Substance: EPIRUBICIN
     Dosage: DOSE RE-INTRODUCED WITH SODIUM CHLORIDE, FEC REGIMEN
     Route: 041
  9. ENDOXAN [Suspect]
     Active Substance: CYCLOPHOSPHAMIDE
     Dosage: DOSE RE-INTRODUCED WITH SODIUM CHLORIDE, FEC REGIMEN
     Route: 041
  10. 0.9% SODIUM CHLORIDE INJECTION [Suspect]
     Active Substance: SODIUM CHLORIDE
     Dosage: SOLVENT FOR EPIRUBICIN, FEC REGIMEN
     Route: 041
     Dates: start: 20190113, end: 20190114
  11. 0.9% SODIUM CHLORIDE INJECTION [Suspect]
     Active Substance: SODIUM CHLORIDE
     Dosage: DOSE RE-INTRODUCED WITH 5-FU, FEC REGIMEN
     Route: 041
  12. FLUOROURACIL. [Suspect]
     Active Substance: FLUOROURACIL
     Dosage: DOSE RE-INTRODUCED WITH SODIUM CHLORIDE., FEC REGIMEN
     Route: 041

REACTIONS (1)
  - Bone marrow failure [Recovered/Resolved]

NARRATIVE: CASE EVENT DATE: 20190121
